FAERS Safety Report 9432388 (Version 4)
Quarter: 2013Q3

REPORT INFORMATION
  Report Type: Spontaneous
  Country: IT (occurrence: None)
  Receive Date: 20130729
  Receipt Date: 20130910
  Transmission Date: 20140515
  Serious: Yes (Death, Hospitalization, Other)
  Sender: FDA-Public Use
  Company Number: AUR-APL-2013-06171

PATIENT
  Age: 88 Year
  Sex: Female

DRUGS (8)
  1. RAMIPRIL [Suspect]
     Indication: HYPERTENSION
     Dosage: 5 MG (5 MG, 1 IN 1 D), ORAL
     Route: 048
     Dates: start: 20100101, end: 20130527
  2. SPIRONOLACTONE [Suspect]
     Indication: PRODUCT USED FOR UNKNOWN INDICATION
     Dosage: 5 MG (5 MG, 1 IN 1 D), ORAL
     Route: 048
     Dates: start: 20100101, end: 20130527
  3. CARDIRENE (ACETYLSALICYLATE LYSINE) [Concomitant]
  4. TIKLID (TICLOPIDINE HYDROCHLORIDE) [Concomitant]
  5. FUROSEMIDE (FUROSEMIDE) [Concomitant]
  6. OMEPRAZOLE (OMEPRAZOLE) [Concomitant]
  7. ALLOPURINOL [Concomitant]
  8. BISOPROLOL HEMIFUMARATE (BISOPROLOL FUMARATE) [Concomitant]

REACTIONS (7)
  - Renal failure acute [None]
  - Cardio-respiratory arrest [None]
  - Mesenteritis [None]
  - Blood potassium increased [None]
  - Ischaemia [None]
  - Cardiac arrest [None]
  - Renal failure acute [None]
